FAERS Safety Report 14924485 (Version 1)
Quarter: 2018Q2

REPORT INFORMATION
  Report Type: Spontaneous
  Country: US (occurrence: US)
  Receive Date: 20180522
  Receipt Date: 20180522
  Transmission Date: 20180711
  Serious: Yes (Hospitalization, Other)
  Sender: FDA-Public Use
  Company Number: US-GLAXOSMITHKLINE-US2018089481

PATIENT
  Sex: Male

DRUGS (3)
  1. LAMICTAL [Suspect]
     Active Substance: LAMOTRIGINE
     Indication: EPILEPSY
     Dosage: 250 MG, BID
     Route: 048
  2. LAMOTRIGINE TABLET [Suspect]
     Active Substance: LAMOTRIGINE
     Indication: EPILEPSY
     Dosage: 250 MG, BID
     Route: 048
  3. ETHOSUXIMIDE. [Concomitant]
     Active Substance: ETHOSUXIMIDE

REACTIONS (5)
  - Fatigue [Unknown]
  - Seizure [Unknown]
  - Generalised tonic-clonic seizure [Recovered/Resolved]
  - Drug dispensing error [Unknown]
  - Initial insomnia [Unknown]
